FAERS Safety Report 24396444 (Version 2)
Quarter: 2024Q4

REPORT INFORMATION
  Report Type: Report from Study
  Country: US (occurrence: US)
  Receive Date: 20241004
  Receipt Date: 20241009
  Transmission Date: 20250115
  Serious: Yes (Other)
  Sender: AMGEN
  Company Number: US-AMGEN-USASP2024195876

PATIENT
  Age: 58 Year
  Sex: Female

DRUGS (3)
  1. TEPEZZA [Suspect]
     Active Substance: TEPROTUMUMAB-TRBW
     Indication: Toxic goitre
     Dosage: 20 MILLIGRAM/KILOGRAM, Q3WK FIRST INFUSION
     Route: 042
     Dates: start: 20240823
  2. TEPEZZA [Suspect]
     Active Substance: TEPROTUMUMAB-TRBW
     Indication: Endocrine ophthalmopathy
     Dosage: 20 MILLIGRAM/KILOGRAM, Q3WK SECOND INFUSION
     Route: 042
     Dates: start: 20240910
  3. TEPEZZA [Suspect]
     Active Substance: TEPROTUMUMAB-TRBW
     Dosage: 20 MILLIGRAM/KILOGRAM, Q3WK
     Route: 042
     Dates: end: 20241002

REACTIONS (2)
  - Tinnitus [Unknown]
  - Fatigue [Unknown]

NARRATIVE: CASE EVENT DATE: 20240910
